FAERS Safety Report 5572655-X (Version None)
Quarter: 2007Q4

REPORT INFORMATION
  Report Type: 
  Country: None (occurrence: None)
  Receive Date: 20071222
  Receipt Date: 20071211
  Transmission Date: 20080405
  Serious: Yes (Other)
  Sender: FDA-Public Use
  Company Number: DE-PFIZER INC-2007096557

PATIENT
  Sex: Female
  Weight: 74 kg

DRUGS (2)
  1. LYRICA [Suspect]
     Indication: POLYNEUROPATHY
     Route: 048
     Dates: start: 20070405, end: 20070614
  2. COMBAREN [Concomitant]
     Dates: start: 20070101, end: 20070101

REACTIONS (8)
  - ARTHRALGIA [None]
  - BLOOD CHOLESTEROL INCREASED [None]
  - CONVULSION [None]
  - DYSAESTHESIA [None]
  - HYPOAESTHESIA [None]
  - MUSCLE TWITCHING [None]
  - PAIN [None]
  - PAIN IN EXTREMITY [None]
